FAERS Safety Report 7165650-0 (Version None)
Quarter: 2010Q4

REPORT INFORMATION
  Report Type: 
  Country: None (occurrence: None)
  Receive Date: 20101215
  Receipt Date: 20091230
  Transmission Date: 20110411
  Serious: No
  Sender: FDA-Public Use
  Company Number: US-AMGEN-KDL383075

PATIENT

DRUGS (10)
  1. ENBREL [Suspect]
     Indication: PRODUCT USED FOR UNKNOWN INDICATION
     Dosage: 50 MG, QWK
     Route: 058
  2. METHOTREXATE [Concomitant]
     Dosage: 2.5 MG, UNK
  3. PREDNISONE [Concomitant]
     Dosage: 1 MG, UNK
     Route: 048
  4. WARFARIN SODIUM [Concomitant]
     Dosage: 1 MG, UNK
     Route: 048
  5. CETIRIZINE HYDROCHLORIDE [Concomitant]
     Dosage: 10 MG, UNK
     Route: 048
  6. LOTREL [Concomitant]
     Dosage: 20 MG, UNK
     Route: 048
  7. OXYCODONE [Concomitant]
     Dosage: 10 MG, UNK
     Route: 048
  8. MULTITABS [Concomitant]
     Dosage: UNK UNK, UNK
  9. BISOPROLOL FUMARATE [Concomitant]
     Dosage: UNK UNK, UNK
     Route: 048
  10. FOLIC ACID [Concomitant]
     Dosage: 5 MG, UNK
     Route: 048

REACTIONS (3)
  - INFLUENZA LIKE ILLNESS [None]
  - INJECTION SITE RASH [None]
  - OEDEMA PERIPHERAL [None]
